FAERS Safety Report 19826045 (Version 1)
Quarter: 2021Q3

REPORT INFORMATION
  Report Type: Spontaneous
  Country: US (occurrence: US)
  Receive Date: 20210910
  Receipt Date: 20210910
  Transmission Date: 20211014
  Serious: Yes (Hospitalization)
  Sender: FDA-Public Use
  Company Number: None

PATIENT
  Age: 74 Year
  Sex: Female

DRUGS (15)
  1. ONDANSETRON [Concomitant]
     Active Substance: ONDANSETRON
  2. ROSUVASTATIN. [Concomitant]
     Active Substance: ROSUVASTATIN
  3. CLOBETASOL LOT [Concomitant]
  4. PIQRAY [Suspect]
     Active Substance: ALPELISIB
     Indication: BREAST CANCER FEMALE
     Route: 048
     Dates: start: 20200325
  5. DIPHEN/ATROP [Concomitant]
     Active Substance: ATROPINE SULFATE\DIPHENOXYLATE
  6. OXYCODONE [Concomitant]
     Active Substance: OXYCODONE
  7. RABEPRAZOLE [Concomitant]
     Active Substance: RABEPRAZOLE
  8. CARVEDILOL. [Concomitant]
     Active Substance: CARVEDILOL
  9. FARXIGA [Concomitant]
     Active Substance: DAPAGLIFLOZIN PROPANEDIOL
  10. PLENVU SOL [Concomitant]
  11. ZOLPIDEM [Concomitant]
     Active Substance: ZOLPIDEM TARTRATE
  12. LISINOPRIL. [Concomitant]
     Active Substance: LISINOPRIL
  13. METFORMIN [Concomitant]
     Active Substance: METFORMIN HYDROCHLORIDE
  14. FLUOXETINE [Concomitant]
     Active Substance: FLUOXETINE HYDROCHLORIDE
  15. POT CL MICRO ER [Concomitant]

REACTIONS (1)
  - Colon cancer [None]

NARRATIVE: CASE EVENT DATE: 20210726
